FAERS Safety Report 4621959-3 (Version None)
Quarter: 2005Q1

REPORT INFORMATION
  Report Type: 
  Country: None (occurrence: None)
  Receive Date: 20050329
  Receipt Date: 20050318
  Transmission Date: 20050727
  Serious: Yes (Other)
  Sender: FDA-Public Use
  Company Number: JP-MERCK-0503USA04529

PATIENT
  Age: 48 Year
  Sex: Male
  Weight: 70 kg

DRUGS (6)
  1. PEPCID [Suspect]
     Indication: PREMEDICATION
     Route: 065
  2. THIOPENTAL SODIUM [Concomitant]
     Indication: ANAESTHESIA
     Route: 065
  3. FENTANYL [Concomitant]
     Indication: ANAESTHESIA
     Route: 065
  4. VECURONIUM BROMIDE [Concomitant]
     Indication: MUSCLE RELAXANT THERAPY
     Route: 065
  5. PENTOBARBITAL [Concomitant]
     Route: 065
  6. PROPOFOL [Concomitant]
     Indication: ANAESTHESIA
     Route: 065

REACTIONS (4)
  - AIR EMBOLISM [None]
  - BLOOD ALBUMIN DECREASED [None]
  - PLEURAL EFFUSION [None]
  - PULMONARY OEDEMA [None]
